FAERS Safety Report 10958503 (Version 8)
Quarter: 2015Q4

REPORT INFORMATION
  Report Type: Spontaneous
  Country: US (occurrence: US)
  Receive Date: 20150326
  Receipt Date: 20151027
  Transmission Date: 20160304
  Serious: Yes (Hospitalization, Other)
  Sender: FDA-Public Use
  Company Number: US-GLAXOSMITHKLINE-US2015GSK039530

PATIENT
  Age: 54 Year
  Sex: Male

DRUGS (8)
  1. FLOLAN [Suspect]
     Active Substance: EPOPROSTENOL SODIUM
     Dosage: 50 NG/KG/MIN (CONCENTRATION 75,000 NG/ML, PUMP RATE 93 ML/DAY, VIAL STRENGTH 1.5), CO
     Route: 042
  2. COUMADIN [Concomitant]
     Active Substance: WARFARIN SODIUM
  3. FLOLAN [Suspect]
     Active Substance: EPOPROSTENOL SODIUM
     Dosage: 41.5 NG/KG/MIN CONTINUOUSLY
  4. TRACLEER [Concomitant]
     Active Substance: BOSENTAN
  5. FLOLAN [Suspect]
     Active Substance: EPOPROSTENOL SODIUM
     Dosage: 22 NG/KG/MIN CONTINUOUS
     Route: 042
  6. FLOLAN [Suspect]
     Active Substance: EPOPROSTENOL SODIUM
     Indication: PULMONARY ARTERIAL HYPERTENSION
     Dosage: 41.5 NG/KG/MIN CONTINUOUSLY
     Route: 042
     Dates: start: 20070320
  7. FLOLAN [Suspect]
     Active Substance: EPOPROSTENOL SODIUM
     Indication: PULMONARY ARTERIAL HYPERTENSION
     Dosage: 75,000 NG/ML, PUMP RATE 77 ML/DAY, VIAL STRENGTH 1.5 MG), CO
     Route: 042
  8. ADCIRCA [Concomitant]
     Active Substance: TADALAFIL

REACTIONS (8)
  - Syncope [Unknown]
  - Pain in extremity [Unknown]
  - Pain in jaw [Unknown]
  - Catheter management [Unknown]
  - Adverse drug reaction [Unknown]
  - Therapeutic procedure [Unknown]
  - Device related infection [Unknown]
  - Headache [Unknown]

NARRATIVE: CASE EVENT DATE: 201505
